FAERS Safety Report 15219840 (Version 1)
Quarter: 2018Q3

REPORT INFORMATION
  Report Type: Spontaneous
  Country: US (occurrence: US)
  Receive Date: 20180703
  Receipt Date: 20180703
  Transmission Date: 20181010
  Serious: Yes (Hospitalization)
  Sender: FDA-Public Use
  Company Number: None

PATIENT
  Age: 46 Year
  Sex: Female
  Weight: 35.29 kg

DRUGS (1)
  1. APIXABAN 5 MG [Suspect]
     Active Substance: APIXABAN
     Indication: DEEP VEIN THROMBOSIS
     Route: 048
     Dates: start: 20180308, end: 20180320

REACTIONS (4)
  - Fatigue [None]
  - Dizziness [None]
  - Anaemia [None]
  - Decreased appetite [None]

NARRATIVE: CASE EVENT DATE: 20180308
